FAERS Safety Report 6370019-2 (Version None)
Quarter: 2009Q3

REPORT INFORMATION
  Report Type: 
  Country: None (occurrence: None)
  Receive Date: 20090923
  Receipt Date: 20071220
  Transmission Date: 20100115
  Serious: Yes (Hospitalization)
  Sender: FDA-Public Use
  Company Number: US-ASTRAZENECA-2006UW08908

PATIENT
  Age: 498 Month
  Sex: Female
  Weight: 95.3 kg

DRUGS (21)
  1. SEROQUEL [Suspect]
     Indication: DEPRESSION
     Dosage: 25 MG TO 200 MG
     Route: 048
     Dates: start: 20021001, end: 20040301
  2. SEROQUEL [Suspect]
     Indication: ANXIETY
     Dosage: 25 MG TO 200 MG
     Route: 048
     Dates: start: 20021001, end: 20040301
  3. SEROQUEL [Suspect]
     Dosage: 25 MG - 200 MG
     Route: 048
     Dates: start: 20021009
  4. SEROQUEL [Suspect]
     Dosage: 25 MG - 200 MG
     Route: 048
     Dates: start: 20021009
  5. RISPERDAL [Suspect]
     Indication: DEPRESSION
     Dates: start: 20010801, end: 20040101
  6. RISPERDAL [Suspect]
     Indication: ANXIETY
     Dates: start: 20010801, end: 20040101
  7. RISPERDAL [Suspect]
     Route: 048
  8. RISPERDAL [Suspect]
     Route: 048
  9. PROZAC [Concomitant]
  10. EFFEXOR [Concomitant]
  11. MOTRIN [Concomitant]
  12. CELEXA [Concomitant]
  13. COGENTIN [Concomitant]
  14. SYMBYAX [Concomitant]
  15. LEXAPRO [Concomitant]
  16. ACTOS [Concomitant]
  17. GLUCOPHAGE [Concomitant]
  18. LISINOPRIL [Concomitant]
  19. TRAZODONE [Concomitant]
  20. LORAZEPAM [Concomitant]
  21. CHLORPROMAZINE [Concomitant]

REACTIONS (2)
  - DIABETES MELLITUS [None]
  - DIABETIC KETOACIDOSIS [None]
